FAERS Safety Report 5163959-3 (Version None)
Quarter: 2006Q4

REPORT INFORMATION
  Report Type: 
  Country: None (occurrence: None)
  Receive Date: 20061204
  Receipt Date: 20061120
  Transmission Date: 20070319
  Serious: Yes (Hospitalization, Other)
  Sender: FDA-Public Use
  Company Number: US-ELI_LILLY_AND_COMPANY-US200611003696

PATIENT
  Age: 57 Year
  Sex: Female
  Weight: 47.619 kg

DRUGS (2)
  1. CYMBALTA [Suspect]
     Indication: BACK PAIN
     Dosage: 60 MG, DAILY (1/D)
     Dates: start: 20050101
  2. SKELAXIN [Concomitant]

REACTIONS (6)
  - APHONIA [None]
  - FALL [None]
  - GRAND MAL CONVULSION [None]
  - LOSS OF CONSCIOUSNESS [None]
  - MUSCULOSKELETAL STIFFNESS [None]
  - RIB FRACTURE [None]
